FAERS Safety Report 6784196-2 (Version None)
Quarter: 2010Q2

REPORT INFORMATION
  Report Type: 
  Country: None (occurrence: None)
  Receive Date: 20100617
  Receipt Date: 20100601
  Transmission Date: 20101027
  Serious: Yes (Death, Other)
  Sender: FDA-Public Use
  Company Number: 2010SCPR001152

PATIENT
  Age: 80 Year
  Sex: Female

DRUGS (2)
  1. DEXAMETHASONE [Suspect]
     Indication: DRUG USE FOR UNKNOWN INDICATION
     Dosage: INTRAVENOUS
     Route: 042
  2. PREDNISOLONE [Suspect]
     Indication: ASTHMA
     Dosage: ORAL
     Route: 048

REACTIONS (11)
  - CYSTITIS HAEMORRHAGIC [None]
  - CYTOMEGALOVIRUS INFECTION [None]
  - DEHYDRATION [None]
  - DISSEMINATED INTRAVASCULAR COAGULATION [None]
  - HAEMATURIA [None]
  - HISTIOCYTOSIS HAEMATOPHAGIC [None]
  - LYMPHOPENIA [None]
  - MELAENA [None]
  - OLIGURIA [None]
  - PNEUMONIA [None]
  - THROMBOCYTOPENIA [None]
